FAERS Safety Report 7386965-7 (Version None)
Quarter: 2011Q1

REPORT INFORMATION
  Report Type: 
  Country: None (occurrence: None)
  Receive Date: 20110323
  Receipt Date: 20110309
  Transmission Date: 20110831
  Serious: Yes (Other)
  Sender: FDA-Public Use
  Company Number: 021931

PATIENT
  Age: 26 Year
  Sex: Female

DRUGS (4)
  1. LEVETIRACETAM [Suspect]
     Indication: EPILEPSY
     Dosage: 2500 MG
  2. CLOBAZAM [Concomitant]
  3. OXCARBAZEPINE [Suspect]
     Indication: EPILEPSY
     Dosage: 1800 MG, 1500 MG, 1350 MG
  4. LACOSAMIDE [Suspect]
     Indication: EPILEPSY
     Dosage: TITRATING DOSE UPTO 200MG), 200 MG QD, TITRATED UP TO 300 MG, 300 MG QD, 350 MG QD

REACTIONS (4)
  - ATAXIA [None]
  - NEUROTOXICITY [None]
  - DRUG INTERACTION [None]
  - DIPLOPIA [None]
